FAERS Safety Report 24179304 (Version 1)
Quarter: 2024Q3

REPORT INFORMATION
  Report Type: Spontaneous
  Country: US (occurrence: None)
  Receive Date: 20240805
  Receipt Date: 20240805
  Transmission Date: 20241016
  Serious: Yes (Life-Threatening)
  Sender: Public
  Company Number: None

PATIENT
  Age: 54 Year
  Sex: Male

DRUGS (3)
  1. INLYTA [Suspect]
     Active Substance: AXITINIB
     Dosage: FREQUENCY : TWICE A DAY;?
     Route: 048
  2. OPDIVO [Concomitant]
     Active Substance: NIVOLUMAB
  3. YERVOY [Concomitant]
     Active Substance: IPILIMUMAB

REACTIONS (12)
  - Therapy interrupted [None]
  - Neoplasm progression [None]
  - Drug intolerance [None]
  - Drug ineffective [None]
  - Transient ischaemic attack [None]
  - Gingival discomfort [None]
  - Burning sensation [None]
  - Paraesthesia [None]
  - Burning sensation [None]
  - Chest pain [None]
  - Dyspnoea [None]
  - Drug rechallenge positive [None]
